FAERS Safety Report 11804499 (Version 1)
Quarter: 2015Q4

REPORT INFORMATION
  Report Type: Spontaneous
  Country: US (occurrence: US)
  Receive Date: 20151204
  Receipt Date: 20151204
  Transmission Date: 20160305
  Serious: Yes (Other)
  Sender: FDA-Public Use
  Company Number: GXBR2015US002665

PATIENT
  Age: 5 Year
  Sex: Male
  Weight: 23.13 kg

DRUGS (3)
  1. MONTELUKAST SODIUM. [Suspect]
     Active Substance: MONTELUKAST SODIUM
     Dosage: 4 MG, QHS
     Route: 048
     Dates: start: 20151130, end: 20151201
  2. CHILDREN MULTIVITAMINS [Concomitant]
     Indication: SUPPLEMENTATION THERAPY
     Dosage: UNK DF, QD
     Route: 048
  3. MONTELUKAST SODIUM. [Suspect]
     Active Substance: MONTELUKAST SODIUM
     Indication: ASTHMA
     Dosage: 4 MG, QHS
     Route: 048
     Dates: start: 201507, end: 20151112

REACTIONS (10)
  - Intentional self-injury [Recovering/Resolving]
  - Sleep disorder [Recovering/Resolving]
  - Social avoidant behaviour [Recovering/Resolving]
  - Self-injurious ideation [Recovering/Resolving]
  - Aggression [Recovering/Resolving]
  - Pain in extremity [Recovering/Resolving]
  - Crying [Recovering/Resolving]
  - Sleep terror [Recovering/Resolving]
  - Hallucination, auditory [Recovering/Resolving]
  - Depression [Recovering/Resolving]

NARRATIVE: CASE EVENT DATE: 201511
